FAERS Safety Report 7360709-7 (Version None)
Quarter: 2011Q1

REPORT INFORMATION
  Report Type: 
  Country: None (occurrence: None)
  Receive Date: 20110318
  Receipt Date: 20110314
  Transmission Date: 20110831
  Serious: Yes (Hospitalization)
  Sender: FDA-Public Use
  Company Number: US-BRISTOL-MYERS SQUIBB COMPANY-15608532

PATIENT
  Age: 73 Year
  Sex: Male
  Weight: 69 kg

DRUGS (16)
  1. CISPLATIN [Suspect]
     Indication: HEAD AND NECK CANCER
     Route: 042
     Dates: start: 20110301, end: 20110301
  2. PREDNISONE TAB [Concomitant]
     Route: 065
     Dates: start: 20090508
  3. GRANISETRON HCL [Concomitant]
     Route: 062
     Dates: start: 20110301
  4. FOLIC ACID [Concomitant]
     Route: 065
     Dates: start: 20080527
  5. DECADRON [Concomitant]
     Route: 065
     Dates: start: 20110301
  6. BENADRYL [Concomitant]
     Route: 065
     Dates: start: 20110301
  7. ZANTAC [Concomitant]
     Route: 065
     Dates: start: 20110301
  8. LEXAPRO [Concomitant]
     Route: 065
     Dates: start: 20090318
  9. COMPAZINE [Concomitant]
     Route: 065
     Dates: start: 20110301
  10. CETUXIMAB [Suspect]
     Indication: HEAD AND NECK CANCER
  11. DILAUDID [Concomitant]
     Route: 065
     Dates: start: 20110225
  12. ZOFRAN [Concomitant]
     Route: 065
     Dates: start: 20110301
  13. COUMADIN [Concomitant]
     Route: 065
     Dates: start: 20100624
  14. FLUOROURACIL [Suspect]
     Indication: HEAD AND NECK CANCER
     Route: 042
     Dates: start: 20110301, end: 20110304
  15. ARAVA [Concomitant]
     Route: 065
     Dates: start: 20090508
  16. ALOXI [Concomitant]
     Route: 065
     Dates: start: 20110301

REACTIONS (2)
  - HYPOXIA [None]
  - RESPIRATORY DISTRESS [None]
